FAERS Safety Report 9865139 (Version 2)
Quarter: 2014Q1

REPORT INFORMATION
  Report Type: Spontaneous
  Country: US (occurrence: US)
  Receive Date: 20140203
  Receipt Date: 20140203
  Transmission Date: 20141002
  Serious: No
  Sender: FDA-Public Use
  Company Number: US-ALLERGAN-1303703US

PATIENT
  Age: 82 Year
  Sex: Female

DRUGS (10)
  1. RESTASIS [Suspect]
     Indication: DRY EYE
     Dosage: 2 GTT, BID
     Route: 047
     Dates: start: 201209
  2. RESTASIS [Suspect]
     Dosage: 2 GTT, BID
     Route: 047
     Dates: start: 201209
  3. ACIPHEX [Concomitant]
     Indication: GASTRIC DISORDER
     Dosage: UNK
  4. ANTIDEPRESSANT NOS [Concomitant]
     Indication: DEPRESSION
     Dosage: UNK
  5. SOOTHE [Concomitant]
     Indication: DRY EYE
     Dosage: UNK
  6. BLINK                              /00582501/ [Concomitant]
     Indication: DRY EYE
     Dosage: UNK
  7. SYSTANE [Concomitant]
     Indication: DRY EYE
     Dosage: UNK
  8. OTC PAIN RELIEVERS [Concomitant]
     Indication: FIBROMYALGIA
     Dosage: UNK, PRN
  9. SUPPLEMENTS [Concomitant]
     Indication: SUPPLEMENTATION THERAPY
     Dosage: UNK
  10. PREDNISONE [Concomitant]
     Indication: FIBROMYALGIA
     Dosage: UNK
     Route: 048

REACTIONS (3)
  - Eye irritation [Unknown]
  - Drug ineffective [Unknown]
  - Drug ineffective [Unknown]
